FAERS Safety Report 6840949-3 (Version None)
Quarter: 2010Q3

REPORT INFORMATION
  Report Type: 
  Country: None (occurrence: None)
  Receive Date: 20100714
  Receipt Date: 20070622
  Transmission Date: 20110219
  Serious: No
  Sender: FDA-Public Use
  Company Number: US-PFIZER INC-2007052553

PATIENT
  Sex: Female
  Weight: 86.3 kg

DRUGS (6)
  1. CHANTIX [Suspect]
     Indication: SMOKING CESSATION THERAPY
     Route: 048
     Dates: start: 20070612
  2. LIPITOR [Concomitant]
     Indication: HYPERTENSION
     Route: 048
  3. PRILOSEC [Concomitant]
     Route: 048
  4. CLARINEX [Concomitant]
     Route: 048
  5. ATENOLOL [Concomitant]
     Route: 048
  6. DRUG, UNSPECIFIED [Concomitant]
     Route: 048

REACTIONS (5)
  - ABDOMINAL DISCOMFORT [None]
  - FEELING ABNORMAL [None]
  - GASTRIC DISORDER [None]
  - NAUSEA [None]
  - VOMITING [None]
